FAERS Safety Report 5066539-3 (Version None)
Quarter: 2006Q3

REPORT INFORMATION
  Report Type: 
  Country: None (occurrence: None)
  Receive Date: 20060726
  Receipt Date: 20060713
  Transmission Date: 20061208
  Serious: Yes (Other)
  Sender: FDA-Public Use
  Company Number: 2006087269

PATIENT
  Sex: Male

DRUGS (2)
  1. VFEND [Suspect]
     Indication: DRUG USE FOR UNKNOWN INDICATION
  2. ALL OTHER THERAPEUTIC PRODUCTS (ALL OTHER THERAPEUTIC PRODUCTS) [Concomitant]

REACTIONS (3)
  - BEDRIDDEN [None]
  - INFECTION IN AN IMMUNOCOMPROMISED HOST [None]
  - URINARY TRACT INFECTION [None]
